FAERS Safety Report 8932446 (Version 1)
Quarter: 2012Q4

REPORT INFORMATION
  Report Type: 
  Country: FR (occurrence: FR)
  Receive Date: 20121128
  Receipt Date: 20121128
  Transmission Date: 20130627
  Serious: Yes (Other)
  Sender: FDA-Public Use
  Company Number: FR-ROCHE-1159521

PATIENT
  Age: 85 Year
  Sex: Female

DRUGS (9)
  1. ROCEPHINE [Suspect]
     Indication: PRODUCT USED FOR UNKNOWN INDICATION
     Route: 058
     Dates: start: 20120916, end: 20120921
  2. GENTAMICIN [Suspect]
     Indication: PRODUCT USED FOR UNKNOWN INDICATION
     Route: 042
     Dates: start: 20120916, end: 20120923
  3. CLAMOXYL [Suspect]
     Indication: PRODUCT USED FOR UNKNOWN INDICATION
     Route: 042
     Dates: start: 20120922, end: 20120923
  4. ACTRAPID [Suspect]
     Indication: PRODUCT USED FOR UNKNOWN INDICATION
     Route: 058
     Dates: start: 20120923, end: 20120926
  5. AUGMENTIN [Suspect]
     Indication: PRODUCT USED FOR UNKNOWN INDICATION
     Route: 048
     Dates: start: 20120915, end: 20120916
  6. FUROSEMIDE [Concomitant]
     Route: 048
     Dates: end: 20121006
  7. PREVISCAN [Concomitant]
     Route: 048
     Dates: end: 20120923
  8. TAVANIC [Concomitant]
     Route: 065
     Dates: start: 20120924, end: 20121013
  9. INVANZ [Concomitant]

REACTIONS (9)
  - Acute generalised exanthematous pustulosis [Recovered/Resolved]
  - Renal failure chronic [None]
  - Inflammation [None]
  - Condition aggravated [None]
  - Bacterial pyelonephritis [None]
  - Escherichia test positive [None]
  - Endocarditis [None]
  - Cardiac failure [None]
  - Treatment failure [None]
